FAERS Safety Report 5196505-9 (Version None)
Quarter: 2006Q4

REPORT INFORMATION
  Report Type: 
  Country: None (occurrence: None)
  Receive Date: 20061227
  Receipt Date: 20061211
  Transmission Date: 20070319
  Serious: Yes (Life-Threatening)
  Sender: FDA-Public Use
  Company Number: GXKR2006GB08110

PATIENT
  Age: 70 Year
  Sex: Female
  Weight: 41.4 kg

DRUGS (6)
  1. MIRTAZAPINE [Suspect]
     Indication: DEPRESSED MOOD
     Dosage: 1 DF, QD, ORAL
     Route: 048
     Dates: start: 20060818, end: 20061108
  2. AMISULPRIDE (AMISULPRIDE) [Concomitant]
  3. DOXAZOSIN (DOXAZOSIN) [Concomitant]
  4. HYPROMELLOSE (HYPROMELLOSE) [Concomitant]
  5. MEMANTINE HYDROCHLORIDE (MEMANTINE HYDROCHLORIDE) [Concomitant]
  6. PERINDOPRIL ERBUMINE [Concomitant]

REACTIONS (4)
  - BLOOD DISORDER [None]
  - LEUKOPENIA [None]
  - NEUTROPENIA [None]
  - RED BLOOD CELL SCHISTOCYTES PRESENT [None]
